FAERS Safety Report 16565947 (Version 1)
Quarter: 2019Q3

REPORT INFORMATION
  Report Type: Report from Study
  Country: None (occurrence: CO)
  Receive Date: 20190712
  Receipt Date: 20190712
  Transmission Date: 20191004
  Serious: Yes (Hospitalization)
  Sender: FDA-Public Use
  Company Number: CO-ABBVIE-19K-036-2811629-00

PATIENT
  Age: 0 Year
  Sex: Female
  Weight: 7 kg

DRUGS (3)
  1. FERROUS SULFATE. [Concomitant]
     Active Substance: FERROUS SULFATE
     Indication: PRODUCT USED FOR UNKNOWN INDICATION
  2. SYNAGIS [Suspect]
     Active Substance: PALIVIZUMAB
     Indication: BRONCHOPULMONARY DYSPLASIA
     Route: 030
     Dates: start: 20190212, end: 20190307
  3. PEDIAVIT [Concomitant]
     Indication: PRODUCT USED FOR UNKNOWN INDICATION

REACTIONS (5)
  - Anaemia [Recovered/Resolved]
  - Pneumonia [Recovered/Resolved]
  - Respiratory syncytial virus infection [Recovered/Resolved]
  - Productive cough [Recovered/Resolved]
  - Bronchiolitis [Recovered/Resolved]

NARRATIVE: CASE EVENT DATE: 2019
